FAERS Safety Report 8221094-1 (Version None)
Quarter: 2012Q1

REPORT INFORMATION
  Report Type: 
  Country: None (occurrence: None)
  Receive Date: 20120320
  Receipt Date: 20120308
  Transmission Date: 20120608
  Serious: Yes (Other)
  Sender: FDA-Public Use
  Company Number: US-ELI_LILLY_AND_COMPANY-US201203002680

PATIENT
  Sex: Male

DRUGS (14)
  1. EFFIENT [Suspect]
     Indication: STENT PLACEMENT
     Dosage: 10 MG, EVERY OTHER DAY
     Dates: start: 20090101
  2. LEXAPRO [Concomitant]
     Dosage: 10 MG, UNKNOWN
  3. LYCOPENE [Concomitant]
     Dosage: UNK, UNKNOWN
  4. LUMIGAN [Concomitant]
     Dosage: 5 MG, UNKNOWN
  5. MULTIVITAMIN [Concomitant]
     Dosage: UNK, UNKNOWN
  6. ASCORBIC ACID [Concomitant]
     Dosage: UNK, UNKNOWN
  7. FISH OIL [Concomitant]
     Dosage: UNK, UNKNOWN
  8. VITAMIN B-12 [Concomitant]
     Dosage: UNK, UNKNOWN
  9. LEVOTHYROXINE SODIUM [Concomitant]
     Dosage: UNK, 75MCG
  10. VITAMIN D [Concomitant]
     Dosage: UNK, UNKNOWN
  11. LIPITOR [Concomitant]
     Dosage: 80 MG, UNKNOWN
  12. RAMIPRIL [Concomitant]
     Dosage: 2.5 MG, UNKNOWN
  13. HYDROCHLOROTHIAZIDE [Concomitant]
     Dosage: 12.5 MG, UNKNOWN
  14. TAMSULOSIN HCL [Concomitant]
     Dosage: 0.4 MG, UNKNOWN

REACTIONS (3)
  - INCORRECT STORAGE OF DRUG [None]
  - STENT PLACEMENT [None]
  - OFF LABEL USE [None]
